FAERS Safety Report 17261898 (Version 1)
Quarter: 2020Q1

REPORT INFORMATION
  Report Type: Spontaneous
  Country: US (occurrence: US)
  Receive Date: 20200113
  Receipt Date: 20200113
  Transmission Date: 20200409
  Serious: Yes (Other)
  Sender: FDA-Public Use
  Company Number: US-PFIZER INC-2020009172

PATIENT
  Age: 87 Year
  Sex: Male
  Weight: 77.11 kg

DRUGS (2)
  1. ADVIL LIQUI-GELS [Suspect]
     Active Substance: IBUPROFEN
     Dosage: 2 DF, AS NEEDED (HE TOOK 2 TOGETHER YESTERDAY)
     Route: 048
     Dates: start: 20200107
  2. ADVIL LIQUI-GELS [Suspect]
     Active Substance: IBUPROFEN
     Indication: ANALGESIC THERAPY
     Dosage: 200 MG, AS NEEDED
     Route: 048
     Dates: start: 2019

REACTIONS (7)
  - Body height decreased [Unknown]
  - Throat irritation [Recovering/Resolving]
  - Choking [Unknown]
  - Retching [Unknown]
  - Foreign body in respiratory tract [Unknown]
  - Secretion discharge [Recovering/Resolving]
  - Back pain [Unknown]

NARRATIVE: CASE EVENT DATE: 20200107
